FAERS Safety Report 7904089-4 (Version None)
Quarter: 2011Q4

REPORT INFORMATION
  Report Type: 
  Country: None (occurrence: None)
  Receive Date: 20111109
  Receipt Date: 20111103
  Transmission Date: 20120403
  Serious: Yes (Hospitalization, Disabling, Other)
  Sender: FDA-Public Use
  Company Number: US-MERCK-1107USA03698

PATIENT
  Age: 71 Year
  Sex: Female

DRUGS (8)
  1. FOSAMAX [Suspect]
     Route: 048
     Dates: start: 20071101, end: 20080301
  2. FOSAMAX [Suspect]
     Route: 048
     Dates: start: 20001001, end: 20071101
  3. FOSAMAX [Suspect]
     Route: 048
     Dates: start: 20071101, end: 20080301
  4. FOSAMAX [Suspect]
     Indication: OSTEOPOROSIS
     Route: 048
     Dates: start: 19981101, end: 20001001
  5. FOSAMAX [Suspect]
     Route: 048
     Dates: start: 20001001, end: 20071101
  6. FOSAMAX [Suspect]
     Route: 048
     Dates: start: 20080301, end: 20090201
  7. FOSAMAX [Suspect]
     Indication: OSTEOPOROSIS PROPHYLAXIS
     Route: 048
     Dates: start: 19981101, end: 20001001
  8. FOSAMAX [Suspect]
     Route: 048
     Dates: start: 20090201, end: 20091001

REACTIONS (15)
  - OSTEONECROSIS OF JAW [None]
  - RENAL CANCER [None]
  - IMPAIRED HEALING [None]
  - ABSCESS [None]
  - PATIENT-DEVICE INCOMPATIBILITY [None]
  - TEMPOROMANDIBULAR JOINT SYNDROME [None]
  - ORAL INFECTION [None]
  - BLOOD TRIGLYCERIDES [None]
  - EXPOSED BONE IN JAW [None]
  - GASTROOESOPHAGEAL REFLUX DISEASE [None]
  - TOOTH DISORDER [None]
  - ORAL DISORDER [None]
  - PERIPHERAL ARTERIAL OCCLUSIVE DISEASE [None]
  - HYPERTENSION [None]
  - BLOOD CHOLESTEROL INCREASED [None]
